FAERS Safety Report 7382349-6 (Version None)
Quarter: 2011Q1

REPORT INFORMATION
  Report Type: 
  Country: None (occurrence: None)
  Receive Date: 20110329
  Receipt Date: 20110228
  Transmission Date: 20110831
  Serious: Yes (Hospitalization, Other)
  Sender: FDA-Public Use
  Company Number: US-BAYER-201032493NA

PATIENT
  Sex: Female
  Weight: 63.492 kg

DRUGS (7)
  1. YAZ [Suspect]
     Indication: ORAL CONTRACEPTION
     Dosage: UNK
     Route: 048
     Dates: start: 20071117, end: 20091119
  2. ALDARA [Concomitant]
     Dosage: 5 %, UNK
     Dates: start: 20080408
  3. KETOROLAC [Concomitant]
     Dosage: 10 MG, UNK
     Dates: start: 20080401
  4. EPIPEN [Concomitant]
     Dosage: 0.3 MG, UNK
     Dates: start: 20080401
  5. YAZ [Suspect]
     Indication: PREMENSTRUAL SYNDROME
  6. ACETAMINOPHEN AND HYDROCODONE BITARTRATE [Concomitant]
     Dosage: UNK
     Dates: start: 20080812
  7. VALTREX [Concomitant]
     Dosage: 500 MG, UNK
     Dates: start: 20080401

REACTIONS (3)
  - GALLBLADDER DISORDER [None]
  - CHOLELITHIASIS [None]
  - CHOLECYSTITIS [None]
